FAERS Safety Report 12160075 (Version 1)
Quarter: 2016Q1

REPORT INFORMATION
  Report Type: Spontaneous
  Country: FR (occurrence: FR)
  Receive Date: 20160308
  Receipt Date: 20160308
  Transmission Date: 20160526
  Serious: Yes (Hospitalization)
  Sender: FDA-Public Use
  Company Number: FR-TEVA-639856ISR

PATIENT
  Age: 58 Year
  Sex: Female

DRUGS (6)
  1. VINCRISTINE TEVA 0.1 POUR CENT (1 MG/1 ML) [Suspect]
     Active Substance: VINCRISTINE
     Indication: ACUTE LYMPHOCYTIC LEUKAEMIA
     Dosage: 2 MILLIGRAM DAILY;
     Route: 041
     Dates: start: 20151106, end: 20151127
  2. TASIGNA [Suspect]
     Active Substance: NILOTINIB
     Indication: ACUTE LYMPHOCYTIC LEUKAEMIA
     Dosage: 800 MILLIGRAM DAILY;
     Route: 048
     Dates: start: 20151106, end: 20151203
  3. METHOTREXATE (METHOTREXATE SODIUM) [Suspect]
     Active Substance: METHOTREXATE SODIUM
     Indication: ACUTE LYMPHOCYTIC LEUKAEMIA
     Dosage: TOTAL OF FIVE INJECTIONS
     Route: 037
     Dates: start: 20151102, end: 20151130
  4. DEPO-MEDROL [Concomitant]
     Active Substance: METHYLPREDNISOLONE ACETATE
  5. CYTARABINE ACCORD 100 MG/ML [Suspect]
     Active Substance: CYTARABINE
     Indication: ACUTE LYMPHOCYTIC LEUKAEMIA
     Dosage: FORM: SOLUTION FOR INJECTION OR FOR INFUSION. TOTAL OF FIVE INJECTIONS
     Route: 037
     Dates: start: 20151102, end: 20151130
  6. DEXAMETHASONE. [Concomitant]
     Active Substance: DEXAMETHASONE

REACTIONS (1)
  - Neuropathy peripheral [Recovered/Resolved]

NARRATIVE: CASE EVENT DATE: 201511
